FAERS Safety Report 5483898-8 (Version None)
Quarter: 2007Q4

REPORT INFORMATION
  Report Type: 
  Country: None (occurrence: None)
  Receive Date: 20071009
  Receipt Date: 20070926
  Transmission Date: 20080405
  Serious: Yes (Hospitalization)
  Sender: FDA-Public Use
  Company Number: FABR-10759

PATIENT
  Age: 41 Year
  Sex: Male
  Weight: 48 kg

DRUGS (6)
  1. FABRAZYME [Suspect]
     Indication: FABRY'S DISEASE
     Dosage: 50 MG Q2WKS; IV
     Route: 042
     Dates: start: 20040716
  2. CELESTAMINE TAB [Concomitant]
  3. DICLOFENAC SODIUM [Concomitant]
  4. LACTOMIN [Concomitant]
  5. SEVELAMER HYDROCHLORIDE [Concomitant]
  6. CARBAMAZEPINE [Concomitant]

REACTIONS (6)
  - ASTHENIA [None]
  - CEREBRAL INFARCTION [None]
  - DELIRIUM [None]
  - DIZZINESS [None]
  - DYSSTASIA [None]
  - PSYCHOTIC DISORDER [None]
